FAERS Safety Report 8042808 (Version 9)
Quarter: 2018Q3

REPORT INFORMATION
  Report Type: Report from Study
  Country: JP (occurrence: JP)
  Receive Date: 20110718
  Receipt Date: 20180814
  Transmission Date: 20181010
  Serious: Yes (Hospitalization, Other)
  Sender: FDA-Public Use
  Company Number: JP-ROCHE-GNE321335

PATIENT
  Age: 83 Year
  Sex: Female

DRUGS (6)
  1. RANIBIZUMAB. [Suspect]
     Active Substance: RANIBIZUMAB
     Indication: AGE-RELATED MACULAR DEGENERATION
     Dosage: 0.05 ML, UNKNOWN
     Route: 050
     Dates: start: 201004
  2. RANIBIZUMAB. [Suspect]
     Active Substance: RANIBIZUMAB
     Route: 050
     Dates: start: 20110802
  3. RANIBIZUMAB. [Suspect]
     Active Substance: RANIBIZUMAB
     Route: 050
     Dates: start: 20110111
  4. RANIBIZUMAB. [Suspect]
     Active Substance: RANIBIZUMAB
     Route: 050
     Dates: start: 20110308
  5. RANIBIZUMAB. [Suspect]
     Active Substance: RANIBIZUMAB
     Route: 050
     Dates: start: 20110208
  6. GATIFLO [Concomitant]
     Active Substance: GATIFLOXACIN
     Indication: PRODUCT USED FOR UNKNOWN INDICATION
     Dosage: UNK
     Route: 065
     Dates: start: 201004, end: 201008

REACTIONS (4)
  - Detachment of retinal pigment epithelium [Not Recovered/Not Resolved]
  - Retinal scar [Not Recovered/Not Resolved]
  - Retinal haemorrhage [Not Recovered/Not Resolved]
  - Chorioretinal atrophy [Not Recovered/Not Resolved]

NARRATIVE: CASE EVENT DATE: 201004
